FAERS Safety Report 7547277-1 (Version None)
Quarter: 2011Q2

REPORT INFORMATION
  Report Type: 
  Country: None (occurrence: None)
  Receive Date: 20110614
  Receipt Date: 20110601
  Transmission Date: 20111010
  Serious: Yes (Hospitalization)
  Sender: FDA-Public Use
  Company Number: DE-UCBSA-031377

PATIENT
  Sex: Female

DRUGS (3)
  1. ERGOCALCIFEROL [Concomitant]
  2. KEPPRA [Suspect]
  3. ANTIHYPERTENSIVES [Concomitant]
     Indication: HYPERTENSION

REACTIONS (1)
  - VITAMIN D DEFICIENCY [None]
